FAERS Safety Report 5407495-5 (Version None)
Quarter: 2007Q3

REPORT INFORMATION
  Report Type: 
  Country: None (occurrence: None)
  Receive Date: 20070713
  Receipt Date: 20070104
  Transmission Date: 20080115
  Serious: Yes (Hospitalization, Other)
  Sender: FDA-Public Use
  Company Number: US-JNJFOC-20060105223

PATIENT
  Age: 38 Year
  Sex: Female
  Weight: 84.6866 kg

DRUGS (1)
  1. ORTHO EVRA [Suspect]
     Indication: DRUG USE FOR UNKNOWN INDICATION
     Dosage: TRANSDERMAL
     Dates: start: 20040701

REACTIONS (3)
  - PAIN IN EXTREMITY [None]
  - THROMBOSIS [None]
  - VARICOSE VEIN [None]
